FAERS Safety Report 7815869-8 (Version None)
Quarter: 2011Q4

REPORT INFORMATION
  Report Type: 
  Country: None (occurrence: None)
  Receive Date: 20111014
  Receipt Date: 20111010
  Transmission Date: 20120403
  Serious: Yes (Hospitalization, Congenital Anomaly)
  Sender: FDA-Public Use
  Company Number: US-AMGEN INC.-KDC412080

PATIENT
  Sex: Female

DRUGS (18)
  1. TYLENOL-500 [Concomitant]
     Dosage: UNK
     Route: 064
     Dates: start: 20090714, end: 20100110
  2. MULTI-VITAMINS [Concomitant]
     Dosage: UNK UNK, QD
     Route: 064
     Dates: start: 20090717, end: 20100410
  3. PERCOCET [Concomitant]
     Dosage: 12.5 MG, QD
     Route: 064
     Dates: start: 20091224, end: 20100110
  4. AZITHROMYCIN [Concomitant]
     Dosage: 500 MG, QD
     Route: 064
     Dates: start: 20100112, end: 20100116
  5. MUCINEX DM [Concomitant]
     Dosage: UNK UNK, QD
     Route: 064
     Dates: start: 20091201, end: 20100118
  6. ETANERCEPT [Suspect]
     Dosage: 50 MG, QWK
     Route: 064
     Dates: start: 20090717, end: 20090817
  7. VITAMIN D [Concomitant]
     Dosage: UNK UNK, QWK
     Route: 064
     Dates: start: 20090717, end: 20100101
  8. PROGESTERONE [Concomitant]
     Dosage: UNK UNK, QD
     Route: 064
     Dates: start: 20090803, end: 20091005
  9. SELENIUM [Concomitant]
     Dosage: 100 MUG, QD
     Route: 064
     Dates: start: 20090717, end: 20090817
  10. SYNTHROID [Concomitant]
     Dosage: 100 MUG, QD
     Route: 064
     Dates: start: 20090717, end: 20100410
  11. FISH OIL [Concomitant]
     Dosage: UNK UNK, QD
     Route: 064
     Dates: start: 20090717, end: 20100404
  12. ETANERCEPT [Suspect]
     Dosage: 50 MG, QWK
     Route: 064
     Dates: start: 20090717, end: 20090817
  13. ASPIRIN [Concomitant]
     Dosage: 81 MG, QD
     Route: 064
     Dates: start: 20090803, end: 20090918
  14. CORTISONE ACETATE [Concomitant]
     Dosage: 5 MG, QD
     Route: 064
     Dates: start: 20091110, end: 20100410
  15. A/H1N1 INFLUENZA PANDEMIC VACCINE [Concomitant]
     Dosage: UNK
     Route: 064
     Dates: start: 20091019, end: 20091019
  16. CHOLINE [Concomitant]
     Dosage: UNK UNK, QD
     Route: 064
     Dates: start: 20091201, end: 20100410
  17. VITAMIN K2 [Concomitant]
     Dosage: 100 MUG, QD
     Route: 064
     Dates: start: 20090717, end: 20090817
  18. INFLUENZA VACCINE [Concomitant]
     Dosage: UNK UNK, QD
     Route: 064
     Dates: start: 20091102, end: 20091102

REACTIONS (6)
  - CYANOSIS [None]
  - TURNER'S SYNDROME [None]
  - CONGENITAL MITRAL VALVE INCOMPETENCE [None]
  - ATRIAL SEPTAL DEFECT [None]
  - LARYNGEAL STENOSIS [None]
  - LARYNGOMALACIA [None]
